FAERS Safety Report 16159223 (Version 3)
Quarter: 2019Q2

REPORT INFORMATION
  Report Type: Spontaneous
  Country: JP (occurrence: JP)
  Receive Date: 20190404
  Receipt Date: 20190508
  Transmission Date: 20190711
  Serious: Yes (Other)
  Sender: FDA-Public Use
  Company Number: JP-BRISTOL-MYERS SQUIBB COMPANY-BMS-2019-014823

PATIENT
  Age: 70 Year
  Sex: Male

DRUGS (6)
  1. CETUXIMAB. [Suspect]
     Active Substance: CETUXIMAB
     Indication: HEAD AND NECK CANCER
     Dosage: 400 MILLIGRAM/SQ. METER
     Route: 065
     Dates: start: 201806
  2. PACLITAXEL. [Suspect]
     Active Substance: PACLITAXEL
     Indication: HEAD AND NECK CANCER
     Dosage: 80 MILLIGRAM/SQ. METER
     Route: 065
     Dates: start: 201812, end: 201901
  3. CETUXIMAB. [Suspect]
     Active Substance: CETUXIMAB
     Indication: PRODUCT USED FOR UNKNOWN INDICATION
     Dosage: 200 MILLIGRAM/SQ. METER
     Route: 065
     Dates: end: 201806
  4. CETUXIMAB. [Suspect]
     Active Substance: CETUXIMAB
     Indication: PRODUCT USED FOR UNKNOWN INDICATION
     Dosage: 200 MILLIGRAM/SQ. METER
     Route: 065
     Dates: end: 201901
  5. OPDIVO [Suspect]
     Active Substance: NIVOLUMAB
     Indication: HEAD AND NECK CANCER
     Dosage: 240 MILLIGRAM, Q2WK
     Route: 041
     Dates: start: 20181001, end: 20181112
  6. CETUXIMAB. [Suspect]
     Active Substance: CETUXIMAB
     Indication: PRODUCT USED FOR UNKNOWN INDICATION
     Dosage: 400 MILLIGRAM/SQ. METER
     Route: 065
     Dates: start: 201812

REACTIONS (6)
  - Platelet count decreased [Recovering/Resolving]
  - Stomatitis [Recovering/Resolving]
  - Fatigue [Recovering/Resolving]
  - Dermatitis [Recovering/Resolving]
  - Malignant neoplasm progression [Unknown]
  - Alopecia [Recovering/Resolving]
